FAERS Safety Report 10408957 (Version 2)
Quarter: 2014Q3

REPORT INFORMATION
  Report Type: Spontaneous
  Country: JP (occurrence: JP)
  Receive Date: 20140826
  Receipt Date: 20140828
  Transmission Date: 20150326
  Serious: Yes (Death, Other)
  Sender: FDA-Public Use
  Company Number: JP-ELI_LILLY_AND_COMPANY-JP201408007549

PATIENT
  Age: 75 Year
  Sex: Male

DRUGS (2)
  1. GEMZAR [Suspect]
     Active Substance: GEMCITABINE HYDROCHLORIDE
     Indication: BILE DUCT CANCER STAGE IV
     Route: 042
  2. CISPLATIN. [Concomitant]
     Active Substance: CISPLATIN
     Indication: BILE DUCT CANCER STAGE IV

REACTIONS (5)
  - Anal ulcer haemorrhage [Recovering/Resolving]
  - Pneumonia [Unknown]
  - Sepsis [Fatal]
  - Rectal ulcer haemorrhage [Recovering/Resolving]
  - Pancreatic abscess [Recovering/Resolving]
